FAERS Safety Report 24721478 (Version 1)
Quarter: 2024Q4

REPORT INFORMATION
  Report Type: Spontaneous
  Country: FR (occurrence: FR)
  Receive Date: 20241211
  Receipt Date: 20241211
  Transmission Date: 20250115
  Serious: Yes (Hospitalization)
  Sender: B BRAUN
  Company Number: FR-B.Braun Medical Inc.-2166873

PATIENT
  Age: 66 Year
  Sex: Female
  Weight: 86 kg

DRUGS (19)
  1. ACETAMINOPHEN [Suspect]
     Active Substance: ACETAMINOPHEN
  2. APIXABAN [Suspect]
     Active Substance: APIXABAN
  3. TOUJEO [Suspect]
     Active Substance: INSULIN GLARGINE
  4. SULFAMETHOXAZOLE\TRIMETHOPRIM [Suspect]
     Active Substance: SULFAMETHOXAZOLE\TRIMETHOPRIM
  5. ISONIAZID\RIFAMPIN [Suspect]
     Active Substance: ISONIAZID\RIFAMPIN
  6. INFLIXIMAB [Suspect]
     Active Substance: INFLIXIMAB
  7. PREDNISONE [Suspect]
     Active Substance: PREDNISONE
  8. MAGNESIUM [Suspect]
     Active Substance: MAGNESIUM
  9. METFORMIN [Suspect]
     Active Substance: METFORMIN HYDROCHLORIDE
  10. LANSOPRAZOLE [Suspect]
     Active Substance: LANSOPRAZOLE
  11. LEVOTHYROXINE SODIUM [Suspect]
     Active Substance: LEVOTHYROXINE SODIUM
  12. ISONIAZID [Suspect]
     Active Substance: ISONIAZID
  13. INSULIN ASPART [Suspect]
     Active Substance: INSULIN ASPART
  14. FOLIC ACID [Suspect]
     Active Substance: FOLIC ACID
  15. FLUOXETINE [Suspect]
     Active Substance: FLUOXETINE HYDROCHLORIDE
  16. CYCLOPHOSPHAMIDE [Suspect]
     Active Substance: CYCLOPHOSPHAMIDE
  17. CHOLECALCIFEROL [Suspect]
     Active Substance: CHOLECALCIFEROL
  18. CANDESARTAN [Suspect]
     Active Substance: CANDESARTAN
  19. ATORVASTATIN [Suspect]
     Active Substance: ATORVASTATIN

REACTIONS (2)
  - Hepatic steatosis [Unknown]
  - Lung disorder [Unknown]
